FAERS Safety Report 9710956 (Version 2)
Quarter: 2013Q4

REPORT INFORMATION
  Report Type: Spontaneous
  Country: US (occurrence: US)
  Receive Date: 20131126
  Receipt Date: 20131126
  Transmission Date: 20140711
  Serious: No
  Sender: FDA-Public Use
  Company Number: US-BRISTOL-MYERS SQUIBB COMPANY-19069731

PATIENT
  Age: 54 Year
  Sex: Male

DRUGS (1)
  1. BYETTA [Suspect]
     Dosage: 10MCG PEN FOR 0.02ML DOSE, .02ML DOSE DOSE FOR A BYETTA 5MCG PEN.

REACTIONS (1)
  - Drug prescribing error [Unknown]
